FAERS Safety Report 14970180 (Version 1)
Quarter: 2018Q2

REPORT INFORMATION
  Report Type: Spontaneous
  Country: US (occurrence: US)
  Receive Date: 20180604
  Receipt Date: 20180604
  Transmission Date: 20180711
  Serious: Yes (Death)
  Sender: FDA-Public Use
  Company Number: PHHY2017US117908

PATIENT
  Age: 51 Year
  Sex: Male

DRUGS (1)
  1. METFORMIN [Suspect]
     Active Substance: METFORMIN HYDROCHLORIDE
     Indication: PRODUCT USED FOR UNKNOWN INDICATION
     Route: 065

REACTIONS (7)
  - Tachycardia [Fatal]
  - Rhabdomyolysis [Fatal]
  - Hypotension [Fatal]
  - Anion gap [Fatal]
  - Toxicity to various agents [Fatal]
  - Acute lung injury [Fatal]
  - Metabolic acidosis [Fatal]
